FAERS Safety Report 6890106-X (Version None)
Quarter: 2010Q3

REPORT INFORMATION
  Report Type: 
  Country: None (occurrence: None)
  Receive Date: 20100730
  Receipt Date: 20080813
  Transmission Date: 20110219
  Serious: No
  Sender: FDA-Public Use
  Company Number: US-PFIZER INC-2008066187

PATIENT
  Sex: Male
  Weight: 97.272 kg

DRUGS (2)
  1. LIPITOR [Suspect]
     Indication: BLOOD CHOLESTEROL INCREASED
     Route: 048
     Dates: end: 20080730
  2. GLYBURIDE [Concomitant]

REACTIONS (6)
  - ARTHRALGIA [None]
  - BACK PAIN [None]
  - DYSURIA [None]
  - LOW DENSITY LIPOPROTEIN INCREASED [None]
  - PARAESTHESIA [None]
  - SLEEP DISORDER [None]
